FAERS Safety Report 13353985 (Version 1)
Quarter: 2017Q1

REPORT INFORMATION
  Report Type: Spontaneous
  Country: US (occurrence: US)
  Receive Date: 20170320
  Receipt Date: 20170320
  Transmission Date: 20170429
  Serious: Yes (Disabling)
  Sender: FDA-Public Use
  Company Number: None

PATIENT
  Age: 4 Year
  Sex: Female
  Weight: 34.2 kg

DRUGS (6)
  1. PROBIOTICS [Concomitant]
     Active Substance: PROBIOTICS NOS
  2. VITAMINS [Concomitant]
     Active Substance: VITAMINS
  3. ALBUTEROL. [Concomitant]
     Active Substance: ALBUTEROL
  4. MAGNESIUM CITRATE. [Concomitant]
     Active Substance: MAGNESIUM CITRATE
  5. SENOKOT [Concomitant]
     Active Substance: SENNOSIDES
  6. POLYETHYLENE GLYCOL 3350 NF [Suspect]
     Active Substance: POLYETHYLENE GLYCOL 3350
     Indication: CONSTIPATION
     Route: 048
     Dates: start: 20090820, end: 20170224

REACTIONS (2)
  - Anger [None]
  - Oppositional defiant disorder [None]

NARRATIVE: CASE EVENT DATE: 20130814
